FAERS Safety Report 7039668-2 (Version None)
Quarter: 2010Q4

REPORT INFORMATION
  Report Type: 
  Country: None (occurrence: None)
  Receive Date: 20101012
  Receipt Date: 20101004
  Transmission Date: 20110411
  Serious: Yes (Disabling)
  Sender: FDA-Public Use
  Company Number: B0678375A

PATIENT
  Sex: Male
  Weight: 48 kg

DRUGS (3)
  1. SERETIDE [Suspect]
     Indication: EMPHYSEMA
     Dosage: 500MCG PER DAY
     Route: 055
     Dates: start: 20091109, end: 20100816
  2. THEO-DUR [Concomitant]
     Indication: EMPHYSEMA
     Dosage: 300MG PER DAY
     Route: 048
  3. MUCOSTA [Concomitant]
     Dosage: 200MG PER DAY
     Route: 048

REACTIONS (1)
  - PNEUMONIA BACTERIAL [None]
